FAERS Safety Report 14503070 (Version 1)
Quarter: 2018Q1

REPORT INFORMATION
  Report Type: Spontaneous
  Country: US (occurrence: US)
  Receive Date: 20180208
  Receipt Date: 20180208
  Transmission Date: 20180509
  Serious: No
  Sender: FDA-Public Use
  Company Number: US-PFIZER INC-2018052651

PATIENT
  Age: 41 Year
  Sex: Male
  Weight: 104.3 kg

DRUGS (1)
  1. LYRICA [Suspect]
     Active Substance: PREGABALIN
     Indication: NEUROPATHY PERIPHERAL
     Dosage: 150 MG, 4X/DAY (150MG ONE CAPSULE FOUR TIMES A DAY HE THOUGHT)
     Dates: start: 2009, end: 2012

REACTIONS (2)
  - Fibromyalgia [Unknown]
  - Off label use [Unknown]

NARRATIVE: CASE EVENT DATE: 2009
